FAERS Safety Report 8577109-4 (Version None)
Quarter: 2012Q3

REPORT INFORMATION
  Report Type: 
  Country: None (occurrence: None)
  Receive Date: 20120807
  Receipt Date: 20120731
  Transmission Date: 20120928
  Serious: Yes (Life-Threatening, Hospitalization)
  Sender: FDA-Public Use
  Company Number: FR-BAXTER-2012BAX013231

PATIENT
  Sex: Female

DRUGS (6)
  1. IFOSFAMIDE [Suspect]
     Route: 042
     Dates: start: 20120405, end: 20120406
  2. MESNA [Suspect]
     Route: 042
     Dates: start: 20120315
  3. MESNA [Suspect]
     Indication: BREAST CANCER
     Route: 042
     Dates: start: 20120223
  4. MESNA [Suspect]
     Route: 042
     Dates: start: 20120405
  5. IFOSFAMIDE [Suspect]
     Indication: BREAST CANCER
     Route: 042
     Dates: start: 20120223
  6. IFOSFAMIDE [Suspect]
     Route: 042
     Dates: start: 20120315

REACTIONS (1)
  - ENCEPHALOPATHY [None]
